FAERS Safety Report 9085851 (Version 1)
Quarter: 2013Q1

REPORT INFORMATION
  Report Type: Report from Study
  Country: US (occurrence: US)
  Receive Date: 20130131
  Receipt Date: 20130131
  Transmission Date: 20140127
  Serious: No
  Sender: FDA-Public Use
  Company Number: US-ABBOTT-12P-163-0995335-00

PATIENT
  Age: 41 Year
  Sex: Male
  Weight: 113.5 kg

DRUGS (9)
  1. HUMIRA [Suspect]
     Indication: COLITIS ULCERATIVE
     Dosage: ONE TIME DOSE
     Route: 058
     Dates: start: 20121012
  2. PREDNISONE (NON-ABBOTT) [Concomitant]
     Indication: COLITIS ULCERATIVE
  3. LEXAPRO [Concomitant]
     Indication: DEPRESSION
  4. XANAX [Concomitant]
     Indication: ANXIETY
  5. COUMADIN  (NON-ABBOTT) [Concomitant]
     Indication: THROMBOSIS PROPHYLAXIS
  6. VALTREX [Concomitant]
     Indication: HERPES ZOSTER
  7. LASIX (NON-ABBOTT) [Concomitant]
     Indication: OEDEMA PERIPHERAL
  8. LASIX (NON-ABBOTT) [Concomitant]
     Indication: OEDEMA PERIPHERAL
  9. BACTRIN [Concomitant]
     Indication: PRODUCT USED FOR UNKNOWN INDICATION

REACTIONS (2)
  - Injection site haemorrhage [Recovered/Resolved]
  - Injection site pain [Recovered/Resolved]
